FAERS Safety Report 11202218 (Version 1)
Quarter: 2015Q2

REPORT INFORMATION
  Report Type: Spontaneous
  Country: US (occurrence: None)
  Receive Date: 20150617
  Receipt Date: 20150617
  Transmission Date: 20150821
  Serious: Yes (Other)
  Sender: FDA-Public Use
  Company Number: None

PATIENT
  Age: 65 Year
  Sex: Male
  Weight: 98.2 kg

DRUGS (1)
  1. VARENICLINE [Suspect]
     Active Substance: VARENICLINE
     Indication: SMOKING CESSATION THERAPY
     Route: 048
     Dates: start: 20090930, end: 20091117

REACTIONS (4)
  - Headache [None]
  - Visual impairment [None]
  - Insomnia [None]
  - Nightmare [None]

NARRATIVE: CASE EVENT DATE: 20091117
